FAERS Safety Report 10307464 (Version 1)
Quarter: 2014Q3

REPORT INFORMATION
  Report Type: Spontaneous
  Country: US (occurrence: None)
  Receive Date: 20140714
  Receipt Date: 20140714
  Transmission Date: 20150326
  Serious: No
  Sender: FDA-Public Use
  Company Number: None

PATIENT
  Age: 34 Year
  Sex: Male
  Weight: 97.52 kg

DRUGS (1)
  1. VIBRA-TABS [Suspect]
     Active Substance: DOXYCYCLINE HYCLATE
     Indication: TESTICULAR PAIN
     Dosage: 1 PILL TWICE DAILY TAKEN BY MOUTH
     Route: 048
     Dates: start: 20140704, end: 20140712

REACTIONS (5)
  - Chest pain [None]
  - Gastrooesophageal reflux disease [None]
  - Sleep disorder due to general medical condition, insomnia type [None]
  - Anxiety [None]
  - Abdominal pain upper [None]

NARRATIVE: CASE EVENT DATE: 20140705
